FAERS Safety Report 9012411 (Version 1)
Quarter: 2013Q1

REPORT INFORMATION
  Report Type: Spontaneous
  Country: CA (occurrence: CA)
  Receive Date: 20130114
  Receipt Date: 20130114
  Transmission Date: 20140127
  Serious: Yes (Other)
  Sender: FDA-Public Use
  Company Number: CA-BAYER-2013-004229

PATIENT
  Sex: Male

DRUGS (1)
  1. STAXYN (FDT/ODT) [Suspect]

REACTIONS (1)
  - Creatinine renal clearance decreased [None]
